FAERS Safety Report 9290539 (Version 2)
Quarter: 2013Q2

REPORT INFORMATION
  Report Type: Spontaneous
  Country: DE (occurrence: DE)
  Receive Date: 20130515
  Receipt Date: 20130606
  Transmission Date: 20140414
  Serious: Yes (Hospitalization)
  Sender: FDA-Public Use
  Company Number: DE-ROCHE-1223739

PATIENT
  Sex: Female
  Weight: 57 kg

DRUGS (3)
  1. AVASTIN [Suspect]
     Indication: ENDOMETRIAL ADENOCARCINOMA
     Route: 042
     Dates: start: 20130214, end: 20130418
  2. PACLITAXEL [Concomitant]
     Indication: ENDOMETRIAL ADENOCARCINOMA
  3. CARBOPLATIN [Concomitant]
     Indication: ENDOMETRIAL ADENOCARCINOMA

REACTIONS (3)
  - General physical health deterioration [Unknown]
  - Haematochezia [Unknown]
  - Gastrointestinal haemorrhage [Unknown]
